FAERS Safety Report 5948265-9 (Version None)
Quarter: 2008Q4

REPORT INFORMATION
  Report Type: 
  Country: None (occurrence: None)
  Receive Date: 20081111
  Receipt Date: 20081103
  Transmission Date: 20090506
  Serious: Yes (Death, Life-Threatening, Hospitalization)
  Sender: FDA-Public Use
  Company Number: GB-TEVA-180149ISR

PATIENT
  Sex: Female

DRUGS (5)
  1. METHOTREXATE [Suspect]
     Route: 042
     Dates: start: 20080501, end: 20080925
  2. PEGFILGRASTIM [Suspect]
     Dates: start: 20080501, end: 20080918
  3. CYCLOPHOSPHAMIDE [Suspect]
     Route: 042
     Dates: start: 20080501, end: 20080925
  4. FLUOROURACIL [Suspect]
     Route: 042
     Dates: start: 20080501, end: 20080925
  5. EPIRUBICIN [Concomitant]
     Dates: start: 20080501, end: 20080918

REACTIONS (3)
  - DIARRHOEA [None]
  - NEUTROPENIC SEPSIS [None]
  - VOMITING [None]
